FAERS Safety Report 11429314 (Version 1)
Quarter: 2015Q3

REPORT INFORMATION
  Report Type: Spontaneous
  Country: US (occurrence: US)
  Receive Date: 20150828
  Receipt Date: 20150828
  Transmission Date: 20151125
  Serious: No
  Sender: FDA-Public Use
  Company Number: US-ROCHE-1178702

PATIENT
  Age: 59 Year
  Sex: Female

DRUGS (4)
  1. RIBAVIRIN. [Suspect]
     Active Substance: RIBAVIRIN
     Indication: HEPATITIS C
     Dosage: IN DIVIDED DOSES
     Route: 048
     Dates: start: 20121105
  2. PEGASYS [Suspect]
     Active Substance: PEGINTERFERON ALFA-2A
     Indication: HEPATITIS C
     Route: 058
     Dates: start: 20121105
  3. RIBAVIRIN. [Suspect]
     Active Substance: RIBAVIRIN
     Route: 048
  4. TELAPREVIR [Suspect]
     Active Substance: TELAPREVIR
     Indication: HEPATITIS C
     Route: 065
     Dates: start: 20121105

REACTIONS (7)
  - Rash papular [Unknown]
  - Rash pruritic [Unknown]
  - Oedema peripheral [Unknown]
  - Rash erythematous [Unknown]
  - Rash erythematous [Unknown]
  - Paraesthesia [Unknown]
  - Rash macular [Unknown]

NARRATIVE: CASE EVENT DATE: 20121212
